FAERS Safety Report 21346259 (Version 4)
Quarter: 2022Q4

REPORT INFORMATION
  Report Type: Spontaneous
  Country: BE (occurrence: BE)
  Receive Date: 20220917
  Receipt Date: 20221114
  Transmission Date: 20230112
  Serious: Yes (Hospitalization)
  Sender: FDA-Public Use
  Company Number: BE-Accord-277710

PATIENT
  Age: 49 Year
  Sex: Male
  Weight: 105.50 kg

DRUGS (39)
  1. GEMCITABINE [Suspect]
     Active Substance: GEMCITABINE
     Indication: Diffuse large B-cell lymphoma stage I
     Route: 042
     Dates: start: 20220804, end: 20220804
  2. OXALIPLATIN [Suspect]
     Active Substance: OXALIPLATIN
     Indication: Diffuse large B-cell lymphoma stage I
     Route: 042
     Dates: start: 20220804, end: 20220804
  3. EPCORITAMAB [Suspect]
     Active Substance: EPCORITAMAB
     Indication: Diffuse large B-cell lymphoma stage I
     Dosage: PRIMING DOSE; SINGLE
     Route: 058
     Dates: start: 20220804, end: 20220804
  4. LEVOCETIRIZINE [Concomitant]
     Active Substance: LEVOCETIRIZINE
     Indication: Premedication
     Dosage: 5 MG
     Route: 048
     Dates: start: 20220804
  5. ACETAMINOPHEN [Concomitant]
     Active Substance: ACETAMINOPHEN
     Indication: Premedication
     Dosage: 1000 MG
     Route: 048
     Dates: start: 20220811, end: 20220811
  6. SOLU-MEDROL [Concomitant]
     Active Substance: METHYLPREDNISOLONE SODIUM SUCCINATE
     Indication: Prophylaxis
     Dosage: 80 MG
     Route: 042
     Dates: start: 20220811, end: 20220811
  7. MEDROL [Concomitant]
     Active Substance: METHYLPREDNISOLONE
     Indication: Prophylaxis
     Dosage: 64 MG
     Route: 048
     Dates: start: 20220812, end: 20220814
  8. ALLOPURINOL [Concomitant]
     Active Substance: ALLOPURINOL
     Dates: start: 20220613
  9. CORDARONE [Concomitant]
     Active Substance: AMIODARONE HYDROCHLORIDE
     Dates: start: 20220323
  10. DAFALGAN [Concomitant]
     Active Substance: ACETAMINOPHEN
     Dates: start: 20220804, end: 20220804
  11. SULFAMETHOXAZOLE\TRIMETHOPRIM [Concomitant]
     Active Substance: SULFAMETHOXAZOLE\TRIMETHOPRIM
     Dates: start: 20220316
  12. FASTURTEC [Concomitant]
     Active Substance: RASBURICASE
     Dates: start: 20220804, end: 20220805
  13. FOLIC ACID [Concomitant]
     Active Substance: FOLIC ACID
     Dates: start: 20220317
  14. INNOHEP [Concomitant]
     Active Substance: TINZAPARIN SODIUM
     Dates: start: 20220329
  15. POVIDONE-IODINE [Concomitant]
     Active Substance: POVIDONE-IODINE
     Dates: start: 20220315
  16. ALIZAPRIDE HYDROCHLORIDE [Concomitant]
     Active Substance: ALIZAPRIDE HYDROCHLORIDE
     Dates: start: 20220804, end: 20220804
  17. PRAZEPAM [Concomitant]
     Active Substance: PRAZEPAM
     Dates: start: 20220316
  18. MOVICOL [Concomitant]
     Active Substance: POLYETHYLENE GLYCOL 3350\POTASSIUM CHLORIDE\SODIUM BICARBONATE\SODIUM CHLORIDE
     Dates: start: 20220511
  19. PALONOSETRON [Concomitant]
     Active Substance: PALONOSETRON
     Dates: start: 20220804
  20. PANTOMED [Concomitant]
     Dates: start: 20220704
  21. TRAMADOL HYDROCHLORIDE [Concomitant]
     Active Substance: TRAMADOL HYDROCHLORIDE
     Dates: start: 20220804, end: 20220804
  22. CYANOCOBALAMIN\FOLIC ACID\PYRIDOXINE HYDROCHLORIDE [Concomitant]
     Active Substance: CYANOCOBALAMIN\FOLIC ACID\PYRIDOXINE HYDROCHLORIDE
     Dates: start: 20220328
  23. ALIZAPRIDE HYDROCHLORIDE [Concomitant]
     Active Substance: ALIZAPRIDE HYDROCHLORIDE
     Dates: start: 20220804
  24. METHYLPREDNISOLONE [Concomitant]
     Active Substance: METHYLPREDNISOLONE
     Indication: Prophylaxis
     Route: 042
     Dates: start: 20220804
  25. BISOPROLOL [Concomitant]
     Active Substance: BISOPROLOL
     Dates: start: 20220729
  26. DIFLUCAN [Concomitant]
     Active Substance: FLUCONAZOLE
     Dates: start: 20220730
  27. Cilgavimab, Tixagevimab [Concomitant]
     Dates: start: 20220826, end: 20220826
  28. DIHYDROCODEINE BITARTRATE [Concomitant]
     Active Substance: DIHYDROCODEINE BITARTRATE
     Dates: start: 20220727
  29. Riopan [Concomitant]
     Dates: start: 20220727
  30. GELATIN TANNATE [Concomitant]
     Dates: start: 20220808, end: 20220808
  31. POTASSIUM CHLORIDE [Concomitant]
     Active Substance: POTASSIUM CHLORIDE
     Dates: start: 20220825
  32. LIPEGFILGRASTIM [Concomitant]
     Active Substance: LIPEGFILGRASTIM
     Dates: start: 20220804
  33. LORAZEPAM [Concomitant]
     Active Substance: LORAZEPAM
     Dates: start: 20220820
  34. MAGNESIUM SULFATE [Concomitant]
     Active Substance: MAGNESIUM SULFATE
     Dates: start: 20220818, end: 20220821
  35. PERINDOPRIL [Concomitant]
     Active Substance: PERINDOPRIL
     Dates: start: 20220823
  36. EPCORITAMAB [Suspect]
     Active Substance: EPCORITAMAB
     Dosage: INTERMEDIATE DOSE; SINGLE
     Route: 058
     Dates: start: 20220811, end: 20220811
  37. EPCORITAMAB [Suspect]
     Active Substance: EPCORITAMAB
     Dosage: PRIMING DOSE; SINGLE
     Route: 058
     Dates: start: 20220829, end: 20220829
  38. LEVOCETIRIZINE [Concomitant]
     Active Substance: LEVOCETIRIZINE
     Indication: Premedication
     Dosage: 5 MG
     Route: 048
     Dates: start: 20220811
  39. METHYLPREDNISOLONE [Concomitant]
     Active Substance: METHYLPREDNISOLONE
     Indication: Prophylaxis
     Route: 048
     Dates: start: 20220812, end: 20220815

REACTIONS (1)
  - Febrile neutropenia [Recovered/Resolved]

NARRATIVE: CASE EVENT DATE: 20220817
